FAERS Safety Report 21878002 (Version 1)
Quarter: 2023Q1

REPORT INFORMATION
  Report Type: Spontaneous
  Country: US (occurrence: None)
  Receive Date: 20230117
  Receipt Date: 20230117
  Transmission Date: 20230417
  Serious: Yes (Life-Threatening, Hospitalization, Other)
  Sender: FDA-Public Use
  Company Number: None

PATIENT
  Age: 67 Year
  Sex: Male
  Weight: 44 kg

DRUGS (1)
  1. METHADONE HYDROCHLORIDE [Suspect]
     Active Substance: METHADONE HYDROCHLORIDE
     Indication: Drug use disorder
     Dates: start: 20010605, end: 20221017

REACTIONS (3)
  - Torsade de pointes [None]
  - Cardio-respiratory arrest [None]
  - Toxicity to various agents [None]

NARRATIVE: CASE EVENT DATE: 20221017
